FAERS Safety Report 23131427 (Version 1)
Quarter: 2023Q4

REPORT INFORMATION
  Report Type: Spontaneous
  Country: US (occurrence: US)
  Receive Date: 20231031
  Receipt Date: 20231031
  Transmission Date: 20240109
  Serious: Yes (Other)
  Sender: FDA-Public Use
  Company Number: US-PHARMING-PHAUS2023000802

PATIENT

DRUGS (1)
  1. RUCONEST [Suspect]
     Active Substance: HUMAN C1-ESTERASE INHIBITOR
     Indication: Hereditary angioedema
     Dosage: 4200 IU, BEFORE EVERY IMMUNOGLOBULIN INFUSION AT DAY TWO OF THE CYCLE EVERY THREE WEEKS, THEN ONCE W
     Route: 042
     Dates: start: 20201111

REACTIONS (2)
  - Rectal haemorrhage [Unknown]
  - Product use in unapproved indication [Unknown]
